FAERS Safety Report 9881596 (Version 1)
Quarter: 2014Q1

REPORT INFORMATION
  Report Type: Spontaneous
  Country: US (occurrence: None)
  Receive Date: 20140205
  Receipt Date: 20140205
  Transmission Date: 20141002
  Serious: Yes (Death)
  Sender: FDA-Public Use
  Company Number: IMP_07187_2014

PATIENT
  Age: 17 Year
  Sex: Female

DRUGS (2)
  1. BUPROPION [Suspect]
     Indication: PRODUCT USED FOR UNKNOWN INDICATION
     Dosage: DF
  2. ARIPIRAZOLE [Suspect]
     Indication: PRODUCT USED FOR UNKNOWN INDICATION
     Dosage: DF

REACTIONS (13)
  - Poisoning [None]
  - Exposure via ingestion [None]
  - Completed suicide [None]
  - Refusal of treatment by patient [None]
  - Convulsion [None]
  - Cardiac arrest [None]
  - Mydriasis [None]
  - Unresponsive to stimuli [None]
  - Brain oedema [None]
  - Hypotension [None]
  - Brain death [None]
  - Hypoxic-ischaemic encephalopathy [None]
  - Toxicity to various agents [None]
